FAERS Safety Report 9748876 (Version 2)
Quarter: 2013Q4

REPORT INFORMATION
  Report Type: Spontaneous
  Country: US (occurrence: US)
  Receive Date: 20131212
  Receipt Date: 20131212
  Transmission Date: 20140711
  Serious: No
  Sender: FDA-Public Use
  Company Number: US-INCYTE CORPORATION-2013IN001094

PATIENT
  Age: 76 Year
  Sex: Male
  Weight: 73.02 kg

DRUGS (14)
  1. JAKAFI [Suspect]
     Indication: MYELOFIBROSIS
     Dosage: 10 MG, QD
     Route: 048
     Dates: start: 20130318, end: 20130509
  2. PACERONE [Concomitant]
  3. HYDROCODONE [Concomitant]
  4. LEVOTHYROXINE [Concomitant]
  5. WARFARIN [Concomitant]
  6. SIMVASTATIN [Concomitant]
  7. FERROUS SULFATE [Concomitant]
  8. DOXAZOSIN [Concomitant]
  9. FINASTERIDE [Concomitant]
  10. NITROSTAT [Concomitant]
  11. TEMAZEPAM [Concomitant]
  12. HYDROXYUREA [Concomitant]
  13. METOPROLOL [Concomitant]
  14. FUROSEMIDE [Concomitant]

REACTIONS (1)
  - Renal disorder [Recovering/Resolving]
